FAERS Safety Report 5224951-3 (Version None)
Quarter: 2007Q1

REPORT INFORMATION
  Report Type: 
  Country: None (occurrence: None)
  Receive Date: 20070126
  Receipt Date: 20070116
  Transmission Date: 20070707
  Serious: Yes (Other)
  Sender: FDA-Public Use
  Company Number: B0454896A

PATIENT
  Age: 29 Year
  Sex: Female

DRUGS (9)
  1. CEPHAZOLIN SODIUM INJECTION (GENERIC) (CEFAZOLIN SODIUM) [Suspect]
     Indication: PYREXIA
     Dosage: 2 GRAM (S) / THREE TIMES PER DAY / INTRA
  2. HYDRALAZINE HCL [Concomitant]
  3. PRAZOSIN HCL [Concomitant]
  4. ATENOLOL [Concomitant]
  5. NIFEDIPINE [Concomitant]
  6. METHYLDOPA [Concomitant]
  7. SODIUM BICARBONATE [Concomitant]
  8. FOLIC ACID [Concomitant]
  9. FBC [Concomitant]

REACTIONS (2)
  - AURA [None]
  - GRAND MAL CONVULSION [None]
